FAERS Safety Report 14461269 (Version 1)
Quarter: 2018Q1

REPORT INFORMATION
  Report Type: Report from Study
  Country: BE (occurrence: BE)
  Receive Date: 20180130
  Receipt Date: 20180130
  Transmission Date: 20180509
  Serious: Yes (Other)
  Sender: FDA-Public Use
  Company Number: BE-TEVA-2018-BE-851749

PATIENT
  Age: 67 Year
  Sex: Male
  Weight: 91.4 kg

DRUGS (10)
  1. LEUCOVORIN. [Suspect]
     Active Substance: LEUCOVORIN
     Indication: COLORECTAL CANCER METASTATIC
     Dates: start: 20170117
  2. AVASTIN [Suspect]
     Active Substance: BEVACIZUMAB
     Indication: COLORECTAL CANCER METASTATIC
     Dates: start: 20170117
  3. VORINA [Concomitant]
     Dates: start: 20170117
  4. 5-FLUOROURACIL [Suspect]
     Active Substance: FLUOROURACIL
     Indication: COLORECTAL CANCER METASTATIC
     Dates: start: 20170117
  5. AACIDEXAM [Concomitant]
     Active Substance: DEXAMETHASONE
     Dates: start: 20170117
  6. PANTOMED (BELGIUM) [Concomitant]
     Route: 048
     Dates: start: 20170919
  7. ALOXI [Concomitant]
     Active Substance: PALONOSETRON HYDROCHLORIDE
     Dates: start: 20170117
  8. IRINOTECAN [Suspect]
     Active Substance: IRINOTECAN
     Indication: COLORECTAL CANCER METASTATIC
     Dates: start: 20170117
  9. ATROPINE. [Concomitant]
     Active Substance: ATROPINE
     Route: 058
     Dates: start: 20170117
  10. XARELTO [Concomitant]
     Active Substance: RIVAROXABAN
     Route: 048
     Dates: start: 20161115

REACTIONS (6)
  - Diarrhoea [Not Recovered/Not Resolved]
  - Appendicitis [Recovered/Resolved]
  - Dyspepsia [Recovered/Resolved]
  - Abdominal pain [Not Recovered/Not Resolved]
  - C-reactive protein increased [Not Recovered/Not Resolved]
  - Haemoglobin decreased [Recovered/Resolved]

NARRATIVE: CASE EVENT DATE: 20170228
